FAERS Safety Report 5243001-6 (Version None)
Quarter: 2007Q1

REPORT INFORMATION
  Report Type: 
  Country: None (occurrence: None)
  Receive Date: 20061201
  Receipt Date: 20060808
  Transmission Date: 20070707
  Serious: No
  Sender: FDA-Public Use
  Company Number: 2006PV019032

PATIENT
  Age: 67 Year
  Sex: Female
  Weight: 68.0396 kg

DRUGS (5)
  1. BYETTA [Suspect]
     Indication: DIABETES MELLITUS NON-INSULIN-DEPENDENT
     Dosage: SEE IMAGE
     Route: 058
     Dates: start: 20060624, end: 20060723
  2. BYETTA [Suspect]
     Indication: DIABETES MELLITUS NON-INSULIN-DEPENDENT
     Dosage: SEE IMAGE
     Route: 058
     Dates: start: 20060724
  3. GLUCOVANCE [Concomitant]
  4. LISINOPRIL [Concomitant]
  5. ATENOLOL W/ CHLORTALIDONE [Concomitant]

REACTIONS (9)
  - ABDOMINAL DISTENSION [None]
  - BLOOD POTASSIUM DECREASED [None]
  - BLOOD PRESSURE DECREASED [None]
  - DEHYDRATION [None]
  - DIZZINESS [None]
  - FALL [None]
  - NAUSEA [None]
  - VOMITING [None]
  - WEIGHT DECREASED [None]
